FAERS Safety Report 7306055-9 (Version None)
Quarter: 2011Q1

REPORT INFORMATION
  Report Type: 
  Country: None (occurrence: None)
  Receive Date: 20110222
  Receipt Date: 20110214
  Transmission Date: 20110831
  Serious: Yes (Life-Threatening, Hospitalization, Other)
  Sender: FDA-Public Use
  Company Number: GB-GENZYME-THYM-1002310

PATIENT

DRUGS (31)
  1. FLUDARA [Suspect]
     Indication: BONE MARROW CONDITIONING REGIMEN
     Dosage: 53 MG, QD
     Route: 042
     Dates: start: 20110120, end: 20110124
  2. CHLORPHENIRAMINE MALEATE [Concomitant]
     Indication: PREMEDICATION
     Dosage: 100 MG, PRN
     Route: 042
     Dates: start: 20110122, end: 20110123
  3. METHOTREXATE [Concomitant]
     Dosage: 260 MG, UNK
     Route: 042
     Dates: start: 20101031, end: 20101031
  4. METHOTREXATE [Concomitant]
     Indication: CHEMOTHERAPY
     Dosage: 36 MG, 1X/W
     Route: 048
     Dates: start: 20101214, end: 20101229
  5. ONDANSETRON [Concomitant]
     Dosage: 8 MG, TID
     Route: 048
  6. PARACETAMOL [Concomitant]
     Indication: PREMEDICATION
  7. PEG-ASPARAGINASE [Concomitant]
     Indication: CHEMOTHERAPY
     Dosage: 1650 IU, UNK
     Route: 030
     Dates: start: 20101023, end: 20101111
  8. CEFOTAXIME [Concomitant]
     Indication: BODY TEMPERATURE INCREASED
     Dosage: 3.2 MG, TID
     Route: 042
     Dates: start: 20110102, end: 20110105
  9. MERCAPTOPURINE [Concomitant]
     Indication: CHEMOTHERAPY
     Dosage: 135 MG, QD
     Route: 048
     Dates: start: 20101214, end: 20101229
  10. COTRIM [Concomitant]
     Indication: PNEUMOCYSTIS JIROVECI PNEUMONIA
     Dosage: 480 MG, BID
     Route: 048
     Dates: start: 20110119
  11. COTRIM [Concomitant]
     Indication: PROPHYLAXIS
  12. HYDROCORTISONE [Concomitant]
     Indication: PREMEDICATION
     Dosage: 10 MG, PRN
     Route: 042
     Dates: start: 20110122, end: 20110122
  13. METHOTREXATE [Concomitant]
     Dosage: 12 MG, UNK
     Route: 037
     Dates: start: 20101020, end: 20101119
  14. PENICILLIN V [Concomitant]
     Indication: PNEUMONIA PNEUMOCOCCAL
     Dosage: 250 MIU, QD
     Route: 048
  15. PETHIDINE [Concomitant]
     Indication: PAIN
     Dosage: 25 MG, UNK
     Route: 042
     Dates: start: 20110122, end: 20110122
  16. URSODIOL [Concomitant]
     Indication: PROPHYLAXIS
     Dosage: 330 MG, TID
     Route: 048
     Dates: start: 20110119
  17. VINCRISTINE [Concomitant]
     Indication: CHEMOTHERAPY
     Dosage: 2 MG, QD
     Route: 042
     Dates: start: 20101013, end: 20101130
  18. BUSULFAN [Concomitant]
     Indication: BONE MARROW CONDITIONING REGIMEN
     Dosage: 52 MG, QID
     Route: 042
     Dates: start: 20110120, end: 20110122
  19. CEFOTAXIME [Concomitant]
     Indication: COUGH
  20. METHOTREXATE [Concomitant]
     Dosage: 140 MG, UNK
     Route: 042
     Dates: start: 20101120, end: 20101120
  21. MORPHINE [Concomitant]
     Indication: PAIN
     Dosage: 10 MG, PRN
     Route: 048
     Dates: start: 20110122, end: 20110122
  22. PARACETAMOL [Concomitant]
     Indication: BODY TEMPERATURE INCREASED
     Dosage: 1 G, PRN
     Route: 048
     Dates: start: 20110122, end: 20110124
  23. PENICILLIN V [Concomitant]
     Indication: PROPHYLAXIS
  24. URSODIOL [Concomitant]
     Indication: VENOOCCLUSIVE DISEASE
  25. AMPHOTERICIN B [Concomitant]
     Indication: ANTIFUNGAL PROPHYLAXIS
     Dosage: 65 MG, 3X/W
     Route: 042
  26. CLONAZEPAM [Concomitant]
     Indication: PROPHYLAXIS
     Dosage: 0.5 MG, QD
     Route: 048
     Dates: start: 20110119, end: 20110123
  27. LEVOMEPROMAZINE [Concomitant]
     Indication: PROPHYLAXIS OF NAUSEA AND VOMITING
     Dosage: 12 MG, BID
     Route: 048
  28. ONDANSETRON [Concomitant]
     Indication: PROPHYLAXIS OF NAUSEA AND VOMITING
     Dosage: 8 MG, TID
     Route: 042
     Dates: start: 20110119
  29. THYMOGLOBULIN [Suspect]
     Indication: BONE MARROW CONDITIONING REGIMEN
     Dosage: 130 MG, QD
     Route: 042
     Dates: start: 20110122, end: 20110122
  30. MELATONIN [Concomitant]
     Indication: SLEEP DISORDER
     Dosage: 3 MG, QD
     Route: 048
     Dates: start: 20101110, end: 20110101
  31. METHOTREXATE [Concomitant]
     Dosage: 170 MG, UNK
     Route: 042
     Dates: start: 20101021, end: 20101021

REACTIONS (6)
  - LIVER FUNCTION TEST ABNORMAL [None]
  - BODY TEMPERATURE INCREASED [None]
  - TACHYCARDIA [None]
  - RENAL IMPAIRMENT [None]
  - INTERNATIONAL NORMALISED RATIO INCREASED [None]
  - HYPOTENSION [None]
